FAERS Safety Report 4486871-1 (Version None)
Quarter: 2004Q3

REPORT INFORMATION
  Report Type: 
  Country: None (occurrence: None)
  Receive Date: 20040921
  Receipt Date: 20040611
  Transmission Date: 20050211
  Serious: Yes (Death)
  Sender: FDA-Public Use
  Company Number: 028-20785-04060283

PATIENT
  Age: 74 Year
  Sex: Male

DRUGS (4)
  1. THALOMID [Suspect]
     Indication: WALDENSTROM'S MACROGLOBULINAEMIA
     Dosage: 400 MG, QD, ORAL
     Route: 048
     Dates: start: 20020701
  2. PREDNISONE [Concomitant]
  3. CYCLOPHOSPHAMIDE [Concomitant]
  4. EPREX (EPOETIN) [Concomitant]

REACTIONS (1)
  - DEATH [None]
